FAERS Safety Report 8784405 (Version 1)
Quarter: 2012Q4

REPORT INFORMATION
  Report Type: 
  Country: CN (occurrence: CN)
  Receive Date: 20120913
  Receipt Date: 20120913
  Transmission Date: 20130627
  Serious: Yes (Life-Threatening, Hospitalization)
  Sender: FDA-Public Use
  Company Number: CN-GE HEALTHCARE MEDICAL DIAGNOSTICS-VISP-NO-1209S-0372

PATIENT
  Age: 25 Year
  Sex: Female
  Weight: 50 kg

DRUGS (2)
  1. VISIPAQUE [Suspect]
     Indication: PRODUCT USED FOR UNKNOWN INDICATION
     Route: 013
     Dates: start: 20120613, end: 20120613
  2. PHENOBARBITAL SODIUM [Concomitant]

REACTIONS (3)
  - Parotid gland enlargement [Recovered/Resolved]
  - Local swelling [Recovered/Resolved]
  - Hyperpyrexia [Recovered/Resolved]
